FAERS Safety Report 7932353-1 (Version None)
Quarter: 2011Q4

REPORT INFORMATION
  Report Type: 
  Country: None (occurrence: None)
  Receive Date: 20111121
  Receipt Date: 20111116
  Transmission Date: 20120403
  Serious: Yes (Life-Threatening, Hospitalization, Other)
  Sender: FDA-Public Use
  Company Number: US-ASTRAZENECA-2011SE55998

PATIENT
  Age: 53 Year
  Sex: Male
  Weight: 120.2 kg

DRUGS (10)
  1. SEROQUEL [Suspect]
     Indication: BIPOLAR DISORDER
     Route: 048
  2. SEROQUEL [Suspect]
     Route: 048
  3. DIABETES MEDICATION [Concomitant]
  4. BLOOD PRESSURE MEDICATION [Concomitant]
  5. SEROQUEL [Suspect]
     Indication: DEPRESSION
     Route: 048
  6. SEROQUEL [Suspect]
     Route: 048
  7. SEROQUEL [Suspect]
     Route: 048
  8. SEROQUEL [Suspect]
     Dosage: 200 MG IN THE MORNING AND 400 MG IN THE AFTERNOON
     Route: 048
  9. SEROQUEL [Suspect]
     Dosage: 200 MG IN THE MORNING AND 400 MG IN THE AFTERNOON
     Route: 048
  10. SEROQUEL [Suspect]
     Route: 048

REACTIONS (6)
  - SUICIDE ATTEMPT [None]
  - DRUG DOSE OMISSION [None]
  - HYPERTENSION [None]
  - SOMNOLENCE [None]
  - DIABETES MELLITUS [None]
  - MULTIPLE DRUG OVERDOSE [None]
